FAERS Safety Report 14382338 (Version 1)
Quarter: 2018Q1

REPORT INFORMATION
  Report Type: Spontaneous
  Country: SE (occurrence: SE)
  Receive Date: 20180112
  Receipt Date: 20180112
  Transmission Date: 20180509
  Serious: Yes (Other)
  Sender: FDA-Public Use
  Company Number: SE-TEVA-2018-SE-842855

PATIENT
  Age: 40 Year
  Sex: Female
  Weight: 120 kg

DRUGS (5)
  1. NOVOPULMON [Concomitant]
     Active Substance: BUDESONIDE
     Dates: start: 2008
  2. CITALOPRAM [Suspect]
     Active Substance: CITALOPRAM HYDROBROMIDE
     Indication: DEPRESSION
     Dosage: 20 MILLIGRAM DAILY;
     Route: 065
     Dates: start: 20171027
  3. OXIS [Concomitant]
     Active Substance: FORMOTEROL FUMARATE
     Dates: start: 2008
  4. LEPHETON [Concomitant]
     Active Substance: EPHEDRINE\ETHYLMORPHINE
     Dates: start: 1997
  5. COCILLANA-ETYFIN [Concomitant]
     Active Substance: ETHYLMORPHINE HYDROCHLORIDE\HERBALS
     Dates: start: 1990

REACTIONS (1)
  - Pupils unequal [Not Recovered/Not Resolved]

NARRATIVE: CASE EVENT DATE: 20171116
